FAERS Safety Report 24946296 (Version 1)
Quarter: 2025Q1

REPORT INFORMATION
  Report Type: Spontaneous
  Country: JP (occurrence: JP)
  Receive Date: 20250210
  Receipt Date: 20250210
  Transmission Date: 20250408
  Serious: No
  Sender: ALKEM
  Company Number: JP-ALKEM LABORATORIES LIMITED-JP-ALKEM-2024-20716

PATIENT
  Age: 16 Year
  Sex: Male

DRUGS (2)
  1. LINEZOLID [Interacting]
     Active Substance: LINEZOLID
     Indication: Postoperative wound infection
     Dosage: 1200 MILLIGRAM, QD (GREATER THAN 10 DAYS)
     Route: 048
  2. WARFARIN [Interacting]
     Active Substance: WARFARIN
     Indication: Antiplatelet therapy
     Route: 065

REACTIONS (1)
  - Drug interaction [Unknown]
